FAERS Safety Report 5476306-4 (Version None)
Quarter: 2007Q4

REPORT INFORMATION
  Report Type: 
  Country: None (occurrence: None)
  Receive Date: 20071003
  Receipt Date: 20070926
  Transmission Date: 20080405
  Serious: Yes (Hospitalization)
  Sender: FDA-Public Use
  Company Number: US-GENENTECH-247955

PATIENT
  Sex: Male
  Weight: 76.19 kg

DRUGS (1)
  1. RAPTIVA [Suspect]
     Indication: PSORIASIS
     Dosage: 0.8 ML, 1/WEEK
     Route: 058
     Dates: start: 20070605, end: 20070815

REACTIONS (3)
  - LYMPHADENOPATHY [None]
  - PLATELET COUNT DECREASED [None]
  - RETROVIRAL INFECTION [None]
